FAERS Safety Report 6246669-0 (Version None)
Quarter: 2009Q2

REPORT INFORMATION
  Report Type: 
  Country: None (occurrence: None)
  Receive Date: 20090624
  Receipt Date: 20090624
  Transmission Date: 20091009
  Serious: Yes (Other)
  Sender: FDA-Public Use
  Company Number: None

PATIENT
  Sex: Male
  Weight: 114.76 kg

DRUGS (1)
  1. COMBIGAN [Suspect]
     Indication: GLAUCOMA
     Dosage: 1 DROP EACH EYE TWICE DAILY 1 DOSE
     Dates: start: 20090622, end: 20090623

REACTIONS (5)
  - DISCOMFORT [None]
  - EYE IRRITATION [None]
  - EYE PAIN [None]
  - FOREIGN BODY IN EYE [None]
  - NO THERAPEUTIC RESPONSE [None]
